FAERS Safety Report 25839500 (Version 2)
Quarter: 2025Q4

REPORT INFORMATION
  Report Type: Spontaneous
  Country: US (occurrence: US)
  Receive Date: 20250924
  Receipt Date: 20251014
  Transmission Date: 20260119
  Serious: No
  Sender: CIPLA
  Company Number: US-CIPLA LTD.-2025US11559

PATIENT

DRUGS (2)
  1. ALBUTEROL [Suspect]
     Active Substance: ALBUTEROL
     Indication: Product used for unknown indication
     Dosage: 180 MICROGRAM, PRN (ONCE OR TWICE A DAY AS NEEDED) (REGULAR USER)
  2. ALBUTEROL [Suspect]
     Active Substance: ALBUTEROL
     Dosage: 180 MICROGRAM, PRN (ONCE OR TWICE A DAY AS NEEDED)
     Dates: start: 202508, end: 202509

REACTIONS (4)
  - Product dose omission issue [Unknown]
  - Incorrect dose administered by device [Unknown]
  - Device malfunction [Unknown]
  - Device delivery system issue [Unknown]

NARRATIVE: CASE EVENT DATE: 20250801
